FAERS Safety Report 22142449 (Version 1)
Quarter: 2023Q1

REPORT INFORMATION
  Report Type: Spontaneous
  Country: US (occurrence: US)
  Receive Date: 20230327
  Receipt Date: 20230327
  Transmission Date: 20230417
  Serious: No
  Sender: FDA-Public Use
  Company Number: US-PFIZER INC-2019493703

PATIENT
  Age: 74 Year

DRUGS (1)
  1. PREMARIN [Suspect]
     Active Substance: ESTROGENS, CONJUGATED
     Indication: Hot flush
     Dosage: UNK (EVERY OTHER DAY)

REACTIONS (3)
  - Off label use [Unknown]
  - Product use issue [Unknown]
  - Insomnia [Unknown]
